FAERS Safety Report 8707839 (Version 3)
Quarter: 2012Q4

REPORT INFORMATION
  Report Type: 
  Country: US (occurrence: US)
  Receive Date: 20120806
  Receipt Date: 20121005
  Transmission Date: 20130627
  Serious: No
  Sender: FDA-Public Use
  Company Number: US-PFIZER INC-2012184561

PATIENT
  Age: 52 Year
  Sex: Female
  Weight: 102 kg

DRUGS (8)
  1. CHANTIX [Suspect]
     Indication: SMOKING CESSATION THERAPY
     Dosage: 0.5 mg, 1x/day
     Route: 048
     Dates: start: 20120721, end: 201207
  2. CHANTIX [Suspect]
     Dosage: 0.5 mg, 2x/day
     Route: 048
     Dates: start: 201207, end: 201207
  3. CHANTIX [Suspect]
     Dosage: 1 mg, 2x/day
     Route: 048
     Dates: start: 201207, end: 20120808
  4. LISINOPRIL W/HYDROCHLOROTHIAZIDE [Concomitant]
     Indication: HYPERTENSION
     Dosage: 20-12.5, 1x/day
  5. ADVAIR DISKUS [Concomitant]
     Indication: ASTHMA
     Dosage: 250/50, once or twice daily
  6. ALBUTEROL [Concomitant]
     Indication: ASTHMA
     Dosage: UNK, as needed
     Route: 055
  7. ALLEGRA [Concomitant]
     Dosage: 60 mg, 2x/day
  8. LORTAB [Concomitant]
     Dosage: 10-500 every 4-6 hrs, as needed

REACTIONS (4)
  - Abnormal dreams [Recovered/Resolved]
  - Feeling abnormal [Unknown]
  - Screaming [Unknown]
  - Nightmare [Recovered/Resolved]
